FAERS Safety Report 18794009 (Version 1)
Quarter: 2021Q1

REPORT INFORMATION
  Report Type: Spontaneous
  Country: IN (occurrence: IN)
  Receive Date: 20210127
  Receipt Date: 20210127
  Transmission Date: 20210419
  Serious: Yes (Hospitalization, Other)
  Sender: FDA-Public Use
  Company Number: IN-CASPER PHARMA LLC-2021CAS000006

PATIENT
  Age: 50 Year
  Sex: Male

DRUGS (1)
  1. BISMUTH, METRONIDAZOLE, TETRACYCLIN [Suspect]
     Active Substance: BISMUTH SUBSALICYLATE\METRONIDAZOLE\TETRACYCLINE HYDROCHLORIDE
     Indication: HEPATIC AMOEBIASIS
     Dosage: 500 MILLIGRAM, TID
     Route: 042

REACTIONS (2)
  - Mania [Recovered/Resolved]
  - Hyperammonaemia [Recovered/Resolved]
